FAERS Safety Report 12435355 (Version 1)
Quarter: 2016Q2

REPORT INFORMATION
  Report Type: Spontaneous
  Country: US (occurrence: US)
  Receive Date: 20160603
  Receipt Date: 20160603
  Transmission Date: 20160815
  Serious: Yes (Hospitalization)
  Sender: FDA-Public Use
  Company Number: US-ROCHE-1706692

PATIENT
  Sex: Male

DRUGS (2)
  1. KLONOPIN [Suspect]
     Active Substance: CLONAZEPAM
     Indication: ANXIETY
     Route: 065
  2. LEXAPRO [Concomitant]
     Active Substance: ESCITALOPRAM OXALATE

REACTIONS (5)
  - Hallucination [Not Recovered/Not Resolved]
  - Nasopharyngitis [Unknown]
  - Balance disorder [Unknown]
  - Fear [Unknown]
  - Back pain [Not Recovered/Not Resolved]
